FAERS Safety Report 18580109 (Version 2)
Quarter: 2022Q2

REPORT INFORMATION
  Report Type: Spontaneous
  Country: BR (occurrence: BR)
  Receive Date: 20201204
  Receipt Date: 20220628
  Transmission Date: 20220720
  Serious: Yes (Hospitalization, Other)
  Sender: FDA-Public Use
  Company Number: BR-GSKCCFAMERS-CASE-00910054_AE-53398

PATIENT

DRUGS (5)
  1. FLUTICASONE FUROATE [Suspect]
     Active Substance: FLUTICASONE FUROATE
     Indication: Nasal congestion
     Dosage: UNK
     Dates: start: 2019
  2. FLUTICASONE FUROATE [Suspect]
     Active Substance: FLUTICASONE FUROATE
     Indication: Pneumonia
  3. FLUTICASONE FUROATE [Suspect]
     Active Substance: FLUTICASONE FUROATE
     Indication: Illness
  4. PNEUMOCOCCAL VACCINE POLYVALENT NOS [Concomitant]
     Active Substance: PNEUMOCOCCAL VACCINE POLYVALENT
     Indication: Pneumonia
     Dosage: UNK, PNEUMOCOCCAL-23 VACCINE
  5. PNEUMOCOCCAL VACCINE POLYVALENT NOS [Concomitant]
     Active Substance: PNEUMOCOCCAL VACCINE POLYVALENT
     Indication: Illness

REACTIONS (5)
  - Pneumonia [Unknown]
  - Ill-defined disorder [Unknown]
  - Illness [Unknown]
  - Nasal disorder [Unknown]
  - Product use in unapproved indication [Unknown]
